FAERS Safety Report 8910148 (Version 3)
Quarter: 2013Q4

REPORT INFORMATION
  Report Type: Report from Study
  Country: JP (occurrence: JP)
  Receive Date: 20121114
  Receipt Date: 20131101
  Transmission Date: 20140711
  Serious: Yes (Hospitalization, Other)
  Sender: FDA-Public Use
  Company Number: JP-VERTEX PHARMACEUTICAL INC.-AE-2012-004787

PATIENT
  Age: 60 Year
  Sex: Female

DRUGS (12)
  1. VX-950 (TELAPREVIR) [Suspect]
     Indication: CHRONIC HEPATITIS C
     Dosage: 1500 MG, QD
     Route: 048
     Dates: start: 20120201, end: 20120209
  2. VX-950 (TELAPREVIR) [Suspect]
     Dosage: 1000 MG, QD
     Route: 048
     Dates: start: 20120210, end: 20120328
  3. PEGINTRON [Suspect]
     Indication: CHRONIC HEPATITIS C
     Dosage: 1.0 ?G/KG, QW
     Route: 058
     Dates: start: 20120201, end: 20120207
  4. PEGINTRON [Suspect]
     Dosage: 0.5 ?G/KG, QW
     Route: 058
     Dates: start: 20120208, end: 20120221
  5. PEGINTRON [Suspect]
     Dosage: 1.0 ?G/KG, QW
     Route: 058
     Dates: start: 20120222, end: 20120313
  6. PEGINTRON [Suspect]
     Dosage: 0.83 ?G/KG, QW
     Route: 058
     Dates: start: 20120314, end: 20120321
  7. REBETOL [Suspect]
     Indication: CHRONIC HEPATITIS C
     Dosage: 400 MG, QD
     Route: 048
     Dates: start: 20120201, end: 20120328
  8. TAURINE [Concomitant]
     Dosage: 3.06 G, QD
     Route: 048
  9. LIVACT [Concomitant]
     Dosage: 12.45 G, QD
     Route: 048
  10. LASIX [Concomitant]
     Dosage: 20 MG, QD
     Route: 048
  11. ALDACTONE [Concomitant]
     Dosage: 75 MG, QD
     Route: 048
  12. URSO [Concomitant]
     Dosage: 300 MG, QD
     Route: 048
     Dates: start: 20120411

REACTIONS (2)
  - Rash [Recovered/Resolved]
  - Platelet count decreased [Recovered/Resolved]
